FAERS Safety Report 5711060-X (Version None)
Quarter: 2008Q2

REPORT INFORMATION
  Report Type: 
  Country: None (occurrence: None)
  Receive Date: 20080421
  Receipt Date: 20080417
  Transmission Date: 20081010
  Serious: Yes (Other)
  Sender: FDA-Public Use
  Company Number: US-BRISTOL-MYERS SQUIBB COMPANY-13645783

PATIENT
  Age: 15 Year
  Sex: Male

DRUGS (2)
  1. TEQUIN [Suspect]
     Route: 042
  2. TYLENOL [Suspect]
     Indication: PYREXIA

REACTIONS (2)
  - HYPERGLYCAEMIA [None]
  - PAIN IN EXTREMITY [None]
